FAERS Safety Report 19417873 (Version 1)
Quarter: 2021Q2

REPORT INFORMATION
  Report Type: Spontaneous
  Country: CH (occurrence: CH)
  Receive Date: 20210615
  Receipt Date: 20210615
  Transmission Date: 20210717
  Serious: Yes (Hospitalization)
  Sender: FDA-Public Use
  Company Number: CH-ABBVIE-21K-151-3942147-00

PATIENT
  Sex: Female

DRUGS (1)
  1. HUMIRA [Suspect]
     Active Substance: ADALIMUMAB
     Indication: SPONDYLITIS
     Route: 058
     Dates: end: 2020

REACTIONS (7)
  - Synovial cyst [Unknown]
  - Fibromyalgia [Unknown]
  - Bone marrow oedema [Unknown]
  - Arthritis [Unknown]
  - Therapeutic product effect incomplete [Unknown]
  - Rheumatic disorder [Unknown]
  - Osteosclerosis [Unknown]

NARRATIVE: CASE EVENT DATE: 2020
